FAERS Safety Report 8486176-8 (Version None)
Quarter: 2012Q3

REPORT INFORMATION
  Report Type: 
  Country: None (occurrence: None)
  Receive Date: 20120703
  Receipt Date: 20120507
  Transmission Date: 20120928
  Serious: Yes (Hospitalization)
  Sender: FDA-Public Use
  Company Number: US-ENDO PHARMACEUTICALS INC.-SPLN20100143

PATIENT
  Sex: Female
  Weight: 44.2 kg

DRUGS (3)
  1. SINGULAIR [Concomitant]
     Indication: PRODUCT USED FOR UNKNOWN INDICATION
     Dosage: UNK
     Route: 065
  2. SUPPRELIN LA [Suspect]
     Indication: PRECOCIOUS PUBERTY
     Route: 058
     Dates: start: 20070101
  3. PREVACID [Concomitant]
     Indication: PRODUCT USED FOR UNKNOWN INDICATION
     Dosage: UNK
     Route: 065

REACTIONS (13)
  - PERSONALITY CHANGE [None]
  - BLADDER SPASM [None]
  - CHEST PAIN [None]
  - DRUG EFFECT DECREASED [None]
  - HYPERTENSION [None]
  - ENURESIS [None]
  - IMPLANT SITE SWELLING [None]
  - ABDOMINAL PAIN UPPER [None]
  - CONSTIPATION [None]
  - MOOD SWINGS [None]
  - AFFECT LABILITY [None]
  - DIARRHOEA [None]
  - HEADACHE [None]
